FAERS Safety Report 12930319 (Version 1)
Quarter: 2016Q4

REPORT INFORMATION
  Report Type: Spontaneous
  Country: US (occurrence: US)
  Receive Date: 20161111
  Receipt Date: 20161111
  Transmission Date: 20170207
  Serious: No
  Sender: FDA-Public Use
  Company Number: None

PATIENT

DRUGS (2)
  1. HALOPERIDOL. [Suspect]
     Active Substance: HALOPERIDOL
  2. VERSED [Suspect]
     Active Substance: MIDAZOLAM HYDROCHLORIDE

REACTIONS (7)
  - Panic attack [None]
  - Delirium [None]
  - Embolism [None]
  - Agitation [None]
  - Myocardial infarction [None]
  - Contraindicated product administered [None]
  - Vascular stent thrombosis [None]
